FAERS Safety Report 8458049-8 (Version None)
Quarter: 2012Q2

REPORT INFORMATION
  Report Type: 
  Country: None (occurrence: None)
  Receive Date: 20120622
  Receipt Date: 20120619
  Transmission Date: 20120825
  Serious: Yes (Other)
  Sender: FDA-Public Use
  Company Number: BE-BAYER-2012-051236

PATIENT
  Age: 55 Year
  Sex: Female

DRUGS (5)
  1. VITAMIN D [Concomitant]
  2. NASAL PREPARATIONS [Concomitant]
  3. ASCORBIC ACID [Concomitant]
  4. LYSOMUCIL [Concomitant]
  5. AVELOX [Suspect]
     Indication: SINUSITIS BACTERIAL

REACTIONS (8)
  - ABDOMINAL PAIN UPPER [None]
  - MALAISE [None]
  - WEIGHT DECREASED [None]
  - HEPATIC ENZYME INCREASED [None]
  - CONSTIPATION [None]
  - PALLOR [None]
  - DRUG-INDUCED LIVER INJURY [None]
  - FATIGUE [None]
